FAERS Safety Report 20384536 (Version 1)
Quarter: 2022Q1

REPORT INFORMATION
  Report Type: Spontaneous
  Country: US (occurrence: US)
  Receive Date: 20220127
  Receipt Date: 20220127
  Transmission Date: 20220424
  Serious: No
  Sender: FDA-Public Use
  Company Number: US-NOVAST LABORATORIES INC.-2021NOV000233

PATIENT

DRUGS (1)
  1. LARIN 1/20 [Suspect]
     Active Substance: ETHINYL ESTRADIOL\NORETHINDRONE ACETATE
     Indication: Oral contraception
     Dosage: UNK
     Route: 048

REACTIONS (5)
  - Chest pain [Unknown]
  - Vaginal discharge [Unknown]
  - Cough [Unknown]
  - Productive cough [Unknown]
  - Blood pressure increased [Unknown]
